FAERS Safety Report 12600538 (Version 1)
Quarter: 2016Q3

REPORT INFORMATION
  Report Type: Spontaneous
  Country: US (occurrence: US)
  Receive Date: 20160727
  Receipt Date: 20160727
  Transmission Date: 20161109
  Serious: No
  Sender: FDA-Public Use
  Company Number: US-TEVA-673147USA

PATIENT
  Age: 58 Year
  Sex: Female

DRUGS (1)
  1. TRISENOX [Suspect]
     Active Substance: ARSENIC TRIOXIDE
     Indication: ACUTE PROMYELOCYTIC LEUKAEMIA
     Dosage: 13.24 MILLIGRAM DAILY;
     Route: 065
     Dates: start: 20160620

REACTIONS (1)
  - Activated partial thromboplastin time prolonged [Not Recovered/Not Resolved]

NARRATIVE: CASE EVENT DATE: 20160627
